FAERS Safety Report 4440667-5 (Version None)
Quarter: 2004Q3

REPORT INFORMATION
  Report Type: 
  Country: None (occurrence: None)
  Receive Date: 20040901
  Receipt Date: 20040901
  Transmission Date: 20050211
  Serious: Yes (Hospitalization)
  Sender: FDA-Public Use
  Company Number: None

PATIENT
  Sex: Female
  Weight: 73.4827 kg

DRUGS (10)
  1. LOPRESSOR [Suspect]
     Indication: CORONARY ARTERY DISEASE
     Dosage: 50 MG PO BID [PRIOR TO ADMISSION]
     Route: 048
  2. ECOTRIN [Concomitant]
  3. NORVASC [Concomitant]
  4. DEMADEX [Concomitant]
  5. PAXIL [Concomitant]
  6. SYNTHROID [Concomitant]
  7. NEXIUM [Concomitant]
  8. PROZAC [Concomitant]
  9. NEURONTIN [Concomitant]
  10. SINEMET [Concomitant]

REACTIONS (2)
  - ASTHENIA [None]
  - DYSARTHRIA [None]
